FAERS Safety Report 6297723-9 (Version None)
Quarter: 2009Q3

REPORT INFORMATION
  Report Type: 
  Country: None (occurrence: None)
  Receive Date: 20090805
  Receipt Date: 20090730
  Transmission Date: 20100115
  Serious: Yes (Hospitalization)
  Sender: FDA-Public Use
  Company Number: US-MYLANLABS-2009S1013417

PATIENT
  Age: 37 Year
  Sex: Female

DRUGS (5)
  1. ATENOLOL [Suspect]
     Indication: HEART RATE
     Route: 048
     Dates: start: 20090501, end: 20090718
  2. ATENOLOL [Suspect]
     Indication: BLOOD PRESSURE
     Route: 048
     Dates: start: 20090501, end: 20090718
  3. ATENOLOL [Suspect]
     Route: 048
     Dates: start: 20090720
  4. ATENOLOL [Suspect]
     Route: 048
     Dates: start: 20090720
  5. NICOTINE [Suspect]
     Indication: SMOKING CESSATION THERAPY
     Route: 062
     Dates: start: 20090711, end: 20090717

REACTIONS (6)
  - BLOOD PRESSURE INCREASED [None]
  - DRUG INEFFECTIVE [None]
  - DRUG INTERACTION [None]
  - HEADACHE [None]
  - HEART RATE INCREASED [None]
  - IRRITABILITY [None]
